FAERS Safety Report 4723299-0 (Version None)
Quarter: 2005Q3

REPORT INFORMATION
  Report Type: 
  Country: None (occurrence: None)
  Receive Date: 20050725
  Receipt Date: 20041108
  Transmission Date: 20060218
  Serious: No
  Sender: FDA-Public Use
  Company Number: US-BRISTOL-MYERS SQUIBB COMPANY-12759783

PATIENT
  Age: 44 Year
  Sex: Female
  Weight: 63 kg

DRUGS (3)
  1. DOVONEX [Suspect]
     Indication: PSORIASIS
     Route: 061
     Dates: start: 20041101, end: 20041103
  2. DOVONEX [Suspect]
     Indication: FUNGUS CULTURE POSITIVE
     Route: 061
     Dates: start: 20041101, end: 20041103
  3. DOVONEX [Suspect]
     Indication: DERMATITIS
     Route: 061
     Dates: start: 20041101, end: 20041103

REACTIONS (2)
  - BURNING SENSATION [None]
  - RASH PAPULAR [None]
